FAERS Safety Report 9413359 (Version 1)
Quarter: 2013Q2

REPORT INFORMATION
  Report Type: Spontaneous
  Country: KR (occurrence: None)
  Receive Date: 20130611
  Receipt Date: 20130611
  Transmission Date: 20140414
  Serious: Yes (Hospitalization, Other)
  Sender: FDA-Public Use
  Company Number: JP-2013-10352

PATIENT
  Age: 61 Year
  Sex: Male

DRUGS (3)
  1. OPC-13013 (CILOSTAZOL) TABLET [Suspect]
     Route: 048
     Dates: start: 20100824, end: 20101201
  2. ASPIRIN (ACETYLSALICYLIC ACID) [Suspect]
     Route: 048
  3. CLOPIDOGREL (CLOPIDOGREL) TABLET [Suspect]
     Route: 048

REACTIONS (1)
  - Coronary angioplasty [None]
